FAERS Safety Report 14707220 (Version 2)
Quarter: 2018Q4

REPORT INFORMATION
  Report Type: Report from Study
  Country: CA (occurrence: CA)
  Receive Date: 20180403
  Receipt Date: 20181126
  Transmission Date: 20190204
  Serious: Yes (Hospitalization)
  Sender: FDA-Public Use
  Company Number: CA-UCBSA-2017011923

PATIENT
  Age: 53 Year
  Sex: Female
  Weight: 97 kg

DRUGS (8)
  1. SYNTHROID [Concomitant]
     Active Substance: LEVOTHYROXINE SODIUM
     Indication: THYROID DISORDER
     Dosage: 125MG A DAY
  2. CERTOLIZUMAB PEGOL RA [Suspect]
     Active Substance: CERTOLIZUMAB PEGOL
     Dosage: 200 MG, EV 2 WEEKS(QOW)
     Route: 058
     Dates: start: 20170503, end: 2017
  3. CERTOLIZUMAB PEGOL RA [Suspect]
     Active Substance: CERTOLIZUMAB PEGOL
     Indication: RHEUMATOID ARTHRITIS
     Dosage: 400 MG, EV 2 WEEKS(QOW)
     Route: 058
     Dates: start: 20161230, end: 2017
  4. CERTOLIZUMAB PEGOL RA [Suspect]
     Active Substance: CERTOLIZUMAB PEGOL
     Dosage: 200 MG, EV 2 WEEKS(QOW)
     Route: 058
     Dates: start: 2017, end: 20170328
  5. CERTOLIZUMAB PEGOL RA [Suspect]
     Active Substance: CERTOLIZUMAB PEGOL
     Dosage: 200 MG, WEEKLY (QW)
     Route: 058
     Dates: start: 20170602, end: 2017
  6. CERTOLIZUMAB PEGOL RA [Suspect]
     Active Substance: CERTOLIZUMAB PEGOL
     Dosage: UNK
     Dates: end: 201803
  7. NOVOCHLOROQUINE [Concomitant]
     Indication: ARTHRITIS
     Dosage: 2/200MG A DAY
  8. PREDNISONE. [Concomitant]
     Active Substance: PREDNISONE
     Indication: PRODUCT USED FOR UNKNOWN INDICATION

REACTIONS (20)
  - Chills [Recovered/Resolved]
  - Sputum discoloured [Recovered/Resolved]
  - Pyrexia [Recovered/Resolved]
  - Productive cough [Recovered/Resolved]
  - Injection site discolouration [Not Recovered/Not Resolved]
  - Sialoadenitis [Recovered/Resolved]
  - Intentional product misuse [Unknown]
  - Drug effect decreased [Unknown]
  - Nausea [Unknown]
  - Dyspepsia [Unknown]
  - Salivary gland disorder [Unknown]
  - Injection site pain [Unknown]
  - Product storage error [Unknown]
  - Injection site bruising [Not Recovered/Not Resolved]
  - Swelling face [Recovered/Resolved]
  - Diverticulitis [Recovered/Resolved]
  - Sleep disorder [Unknown]
  - Aphthous ulcer [Unknown]
  - Respiratory tract infection viral [Unknown]
  - Malaise [Unknown]

NARRATIVE: CASE EVENT DATE: 2017
